FAERS Safety Report 6814040-6 (Version None)
Quarter: 2010Q3

REPORT INFORMATION
  Report Type: 
  Country: None (occurrence: None)
  Receive Date: 20100702
  Receipt Date: 20100622
  Transmission Date: 20110219
  Serious: Yes (Other)
  Sender: FDA-Public Use
  Company Number: PHFR2010GB01056

PATIENT
  Age: 83 Year
  Sex: Male

DRUGS (3)
  1. DICLOFENAC SODIUM [Suspect]
  2. XARELTO [Suspect]
     Indication: HIP ARTHROPLASTY
     Dosage: UNK
     Dates: start: 20100101
  3. ENOXAPARIN [Concomitant]
     Dosage: UNK

REACTIONS (2)
  - HAEMATEMESIS [None]
  - HIP ARTHROPLASTY [None]
